FAERS Safety Report 7211783-X (Version None)
Quarter: 2011Q1

REPORT INFORMATION
  Report Type: 
  Country: None (occurrence: None)
  Receive Date: 20110105
  Receipt Date: 20101228
  Transmission Date: 20110831
  Serious: Yes (Death)
  Sender: FDA-Public Use
  Company Number: JP-AMGEN-JPNSP2010012289

PATIENT

DRUGS (10)
  1. TAKEPRON [Concomitant]
     Dosage: UNK
  2. VOLTAREN [Concomitant]
     Dosage: UNK
  3. PREDONINE [Concomitant]
     Dosage: UNK
  4. HYPEN [Concomitant]
     Dosage: UNK
  5. BEMOLAN [Concomitant]
     Dosage: UNK
  6. LIPITOR [Concomitant]
     Dosage: UNK
  7. SELBEX [Concomitant]
     Dosage: UNK
  8. ENBREL [Suspect]
     Indication: PRODUCT USED FOR UNKNOWN INDICATION
     Dosage: 25 MG, UNK
     Route: 058
     Dates: start: 20090319, end: 20101110
  9. FERROUS CITRATE [Concomitant]
     Dosage: UNK
  10. ISCOTIN [Concomitant]
     Dosage: UNK

REACTIONS (1)
  - SUBARACHNOID HAEMORRHAGE [None]
